FAERS Safety Report 14476203 (Version 7)
Quarter: 2020Q1

REPORT INFORMATION
  Report Type: Report from Study
  Country: US (occurrence: US)
  Receive Date: 20180201
  Receipt Date: 20200207
  Transmission Date: 20200409
  Serious: Yes (Other)
  Sender: FDA-Public Use
  Company Number: US-SA-2017SA245415

PATIENT
  Age: 59 Year
  Sex: Female
  Weight: 88.4 kg

DRUGS (2)
  1. ALIROCUMAB [Suspect]
     Active Substance: ALIROCUMAB
     Indication: TYPE V HYPERLIPIDAEMIA
     Dosage: 150 MG, QOW
     Route: 058
     Dates: start: 201708
  2. ALIROCUMAB [Suspect]
     Active Substance: ALIROCUMAB
     Indication: BLOOD CHOLESTEROL INCREASED

REACTIONS (7)
  - Injury associated with device [Unknown]
  - Rhinorrhoea [Unknown]
  - Knee arthroplasty [Unknown]
  - Bronchitis [Recovering/Resolving]
  - Wrong technique in device usage process [Unknown]
  - Skin haemorrhage [Unknown]
  - Malaise [Recovering/Resolving]

NARRATIVE: CASE EVENT DATE: 201802
